FAERS Safety Report 24834743 (Version 1)
Quarter: 2025Q1

REPORT INFORMATION
  Report Type: Spontaneous
  Country: US (occurrence: None)
  Receive Date: 20250110
  Receipt Date: 20250110
  Transmission Date: 20250408
  Serious: Yes (Other)
  Sender: FDA-CTU
  Company Number: None

PATIENT
  Sex: Female
  Weight: 123.75 kg

DRUGS (10)
  1. DUPIXENT [Suspect]
     Active Substance: DUPILUMAB
     Indication: Asthma
     Route: 058
     Dates: start: 20220101
  2. LOTREL [Concomitant]
     Active Substance: AMLODIPINE BESYLATE\BENAZEPRIL HYDROCHLORIDE
  3. DEXILANT [Concomitant]
     Active Substance: DEXLANSOPRAZOLE
  4. MELOXICAM [Concomitant]
     Active Substance: MELOXICAM
  5. FLUTICASONE PROPIONATE [Concomitant]
     Active Substance: FLUTICASONE PROPIONATE
  6. AZELASTINE HYDROCHLORIDE\FLUTICASONE PROPIONATE [Concomitant]
     Active Substance: AZELASTINE HYDROCHLORIDE\FLUTICASONE PROPIONATE
  7. ALBUTEROL [Concomitant]
     Active Substance: ALBUTEROL
  8. VITAMINS [Concomitant]
     Active Substance: VITAMINS
  9. CALTRATE [Concomitant]
     Active Substance: CALCIUM CARBONATE
  10. TYLENOL [Concomitant]
     Active Substance: ACETAMINOPHEN

REACTIONS (2)
  - Arthralgia [None]
  - Arthritis [None]
